FAERS Safety Report 10618542 (Version 1)
Quarter: 2014Q4

REPORT INFORMATION
  Report Type: Spontaneous
  Country: DE (occurrence: DE)
  Receive Date: 20141202
  Receipt Date: 20141202
  Transmission Date: 20150529
  Serious: Yes (Other)
  Sender: FDA-Public Use
  Company Number: DE-AUROBINDO-AUR-APL-2014-12581

PATIENT
  Sex: Male
  Weight: 2.98 kg

DRUGS (5)
  1. METOPROLOL [Suspect]
     Active Substance: METOPROLOL
     Indication: HYPERTENSION
     Dosage: 95 MG, ONCE A DAY
     Route: 064
     Dates: start: 20131103, end: 20140725
  2. CAPTOPRIL. [Concomitant]
     Active Substance: CAPTOPRIL
     Indication: HYPERTENSION
     Dosage: 5 MG, ONCE A DAY
     Route: 063
  3. ALDACTONE [Concomitant]
     Active Substance: SPIRONOLACTONE
     Indication: HYPERTENSION
     Dosage: 25 MG, ONCE A DAY
     Route: 063
  4. METOPROLOL [Suspect]
     Active Substance: METOPROLOL
     Dosage: 95 MG, DAILY, AFTER 4 DAYS INCREASED DOSAGE
     Route: 063
  5. INSULIN [Concomitant]
     Active Substance: INSULIN NOS
     Indication: GESTATIONAL DIABETES
     Dosage: UNK
     Route: 065

REACTIONS (4)
  - Bradycardia neonatal [Recovered/Resolved]
  - Thrombocytopenia neonatal [Unknown]
  - Foetal exposure during pregnancy [Unknown]
  - Exposure during breast feeding [Unknown]
